FAERS Safety Report 6312558-6 (Version None)
Quarter: 2009Q3

REPORT INFORMATION
  Report Type: 
  Country: None (occurrence: None)
  Receive Date: 20090817
  Receipt Date: 20090512
  Transmission Date: 20100115
  Serious: No
  Sender: FDA-Public Use
  Company Number: US-ALLERGAN-0906559US

PATIENT
  Age: 93 Year
  Sex: Female

DRUGS (3)
  1. SANCTURA XR [Suspect]
     Indication: HYPERTONIC BLADDER
     Route: 048
     Dates: start: 20080901
  2. FML [Concomitant]
     Dosage: UNK, QD
     Route: 047
  3. GENOPTIC [Concomitant]
     Dosage: UNK, QD
     Route: 047

REACTIONS (6)
  - ABNORMAL DREAMS [None]
  - DRY MOUTH [None]
  - MYALGIA [None]
  - NASAL DRYNESS [None]
  - ONYCHOCLASIS [None]
  - PRURITUS GENERALISED [None]
